FAERS Safety Report 16562888 (Version 1)
Quarter: 2019Q3

REPORT INFORMATION
  Report Type: Other
  Country: NL (occurrence: GR)
  Receive Date: 20190711
  Receipt Date: 20190711
  Transmission Date: 20191004
  Serious: Yes (Life-Threatening)
  Sender: FDA-Public Use
  Company Number: NL-KOWA-19EU001779

PATIENT
  Age: 69 Year
  Sex: Male
  Weight: 74 kg

DRUGS (2)
  1. ATROST [Suspect]
     Active Substance: ATORVASTATIN CALCIUM
     Indication: DYSLIPIDAEMIA
     Route: 048
     Dates: start: 20170710, end: 20170926
  2. PITAVA [Suspect]
     Active Substance: PITAVASTATIN
     Indication: DYSLIPIDAEMIA
     Route: 048
     Dates: start: 20170516, end: 20170709

REACTIONS (1)
  - Hepatotoxicity [Recovered/Resolved]

NARRATIVE: CASE EVENT DATE: 201805
